FAERS Safety Report 15951950 (Version 1)
Quarter: 2019Q1

REPORT INFORMATION
  Report Type: Spontaneous
  Country: IT (occurrence: IT)
  Receive Date: 20190212
  Receipt Date: 20190212
  Transmission Date: 20190417
  Serious: Yes (Death, Other)
  Sender: FDA-Public Use
  Company Number: IT-MYLANLABS-2019M1012135

PATIENT
  Age: 68 Year
  Sex: Male

DRUGS (4)
  1. HYDROCHLOROTHIAZIDE/OLMESARTAN/OLMESARTAN MEDOXOMIL [Suspect]
     Active Substance: HYDROCHLOROTHIAZIDE\OLMESARTAN MEDOXOMIL
     Indication: HYPERTENSION
     Dosage: 20 MILLIGRAM, Q2D
     Route: 048
     Dates: start: 20080417, end: 20080622
  2. PLAUNAC [Interacting]
     Active Substance: OLMESARTAN MEDOXOMIL
     Indication: HYPERTENSION
     Dosage: 20 MILLIGRAM, Q2D
     Route: 048
     Dates: start: 20080417, end: 20080622
  3. VIAGRA [Interacting]
     Active Substance: SILDENAFIL CITRATE
     Indication: ERECTILE DYSFUNCTION
     Dosage: UNK
  4. VIAGRA [Interacting]
     Active Substance: SILDENAFIL CITRATE
     Indication: PROSTATECTOMY
     Dosage: 100 MILLIGRAM, TOTAL
     Route: 048
     Dates: start: 20050101, end: 20080622

REACTIONS (2)
  - Drug interaction [Fatal]
  - Sudden death [Fatal]

NARRATIVE: CASE EVENT DATE: 20080622
